FAERS Safety Report 21724574 (Version 2)
Quarter: 2022Q4

REPORT INFORMATION
  Report Type: Spontaneous
  Country: US (occurrence: US)
  Receive Date: 20221213
  Receipt Date: 20221213
  Transmission Date: 20230112
  Serious: No
  Sender: FDA-Public Use
  Company Number: US-Dermavant-000201

PATIENT
  Age: 67 Year
  Sex: Female

DRUGS (20)
  1. TAPINAROF [Suspect]
     Active Substance: TAPINAROF
     Indication: Psoriasis
     Dosage: APPLIED 1 FILM TOPICALLY DAILY TO POSTERIOR BASE OF NECK, ELBOWS
     Route: 061
     Dates: start: 20220914, end: 20220919
  2. OTEZLA [Concomitant]
     Active Substance: APREMILAST
     Indication: Psoriasis
     Dosage: TAKE 1 TABLET BY MOUTH 2 TIMES DAILY
     Route: 048
     Dates: start: 201906
  3. PENTRAX GOLD [Concomitant]
     Dosage: 4% SHAMPOO, APPLY TOPICALLY
     Route: 061
  4. ADVIL [Concomitant]
     Active Substance: IBUPROFEN
     Dosage: TAKE 200 MG BY MOUTH EVERY 6 HOURS AS NEEDED
     Route: 048
  5. VENTOLIN HFA [Concomitant]
     Active Substance: ALBUTEROL SULFATE
     Dosage: 108 (90 BASE) MCG/ACT INHALER
  6. BUMEX [Concomitant]
     Active Substance: BUMETANIDE
     Dosage: 2 MG TABLET, TAKE 1 TABLET BY MOUTH DAILY
     Route: 048
  7. ENSTILAR [Concomitant]
     Active Substance: BETAMETHASONE DIPROPIONATE\CALCIPOTRIENE HYDRATE
     Dosage: 0.005 - 0.064 % FOAM, APPLY 1 FILM TOPICALLY DAILY, TO THE SCALP, EARS AND ELBOWS FOR UP TO 14 DA...
     Route: 061
  8. LASIX [Concomitant]
     Active Substance: FUROSEMIDE
     Route: 048
  9. TYLENOL [Concomitant]
     Active Substance: ACETAMINOPHEN
     Dosage: 500 MG, TAKE 1 TABLET BY MOUTH EVERY 6 HOURS AS NEEDED
     Route: 048
  10. PROVENTIL HFA [Concomitant]
     Active Substance: ALBUTEROL SULFATE
     Dosage: 108 (90 BASE) MCG/ACT INHALER
  11. MOTRIN [Concomitant]
     Active Substance: IBUPROFEN
     Dosage: TAKE 200 MG BY MOUTH EVERY 6 HOURS AS NEEDED
     Route: 048
  12. LEVOTHROID [Concomitant]
     Active Substance: LEVOTHYROXINE SODIUM
     Dosage: 125 MCG TABLET, TAKE 1 TABLET BY MOUTH DAILY
     Route: 048
  13. PROVERA [Concomitant]
     Active Substance: MEDROXYPROGESTERONE ACETATE
  14. ROBAXIN [Concomitant]
     Active Substance: METHOCARBAMOL
     Indication: Pain
     Dosage: TIME INTERVAL: 0.33333333 DAYS: 750 MG TABLET, TAKE 1 TABLET BY MOUTH THREE TIMES DAILY AS NEEDED...
     Route: 048
  15. TOPROL XL [Concomitant]
     Active Substance: METOPROLOL SUCCINATE
     Dosage: 100 MG 24 HR TABLET
  16. SYNTHROID [Concomitant]
     Active Substance: LEVOTHYROXINE SODIUM
     Dosage: 125 MCG TABLET, TAKE 1 TABLET BY MOUTH DAILY
     Route: 048
  17. LORATADINE-D 12HR [Concomitant]
     Dosage: 12HR 5-120 MG TABLET, TAKE 1 TABLET BY MOUTH DAILY
     Route: 048
  18. DELTASONE [Concomitant]
     Active Substance: PREDNISONE
     Dosage: 20 MG TABLET
  19. RESTORIL [Concomitant]
     Active Substance: TEMAZEPAM
  20. MOBIC [Concomitant]
     Active Substance: MELOXICAM
     Route: 048

REACTIONS (3)
  - Skin burning sensation [Recovered/Resolved]
  - Erythema [Recovered/Resolved]
  - Application site pain [Recovered/Resolved]

NARRATIVE: CASE EVENT DATE: 20220914
